FAERS Safety Report 25941082 (Version 2)
Quarter: 2025Q4

REPORT INFORMATION
  Report Type: Spontaneous
  Country: JP (occurrence: JP)
  Receive Date: 20251020
  Receipt Date: 20251218
  Transmission Date: 20260119
  Serious: Yes (Hospitalization, Other)
  Sender: MERCK SHARP & DOHME LLC
  Company Number: JP-ASTRAZENECA-202508GLO022376JP

PATIENT
  Age: 63 Year
  Sex: Male
  Weight: 58 kg

DRUGS (10)
  1. PEMBROLIZUMAB [Suspect]
     Active Substance: PEMBROLIZUMAB
     Indication: Non-small cell lung cancer
     Dosage: 200 MILLIGRAM, Q3W
     Route: 042
     Dates: start: 20240712, end: 20240822
  2. VANTELIN [INDOMETACIN;MENTHOL] [Concomitant]
     Indication: Arthralgia
     Dosage: UNK
     Route: 003
     Dates: start: 2019
  3. INSULIN HUMAN [Concomitant]
     Active Substance: INSULIN HUMAN
     Indication: Blood glucose increased
     Dosage: 14 UNK, DAILY
     Route: 042
     Dates: start: 20241001
  4. HYDROXYZINE HYDROCHLORIDE [Concomitant]
     Active Substance: HYDROXYZINE HYDROCHLORIDE
     Indication: Insomnia
     Dosage: TIME INTERVAL: AS NECESSARY: 50 MG, AS NEEDED
     Route: 042
     Dates: start: 20241108
  5. PANTHENOL (DEXPANTHENOL) [Concomitant]
     Indication: Weight decreased
     Dosage: 500 MILLIGRAM, QD
     Route: 042
     Dates: start: 20240919
  6. OMEPRAZOLE [Concomitant]
     Active Substance: OMEPRAZOLE
     Indication: Prophylaxis
     Dosage: 20 MILLIGRAM, BID
     Route: 042
     Dates: start: 20240912
  7. BISOPROLOL FUMARATE [Concomitant]
     Active Substance: BISOPROLOL FUMARATE
     Indication: Hypertension
     Dosage: TIME INTERVAL: AS NECESSARY: 2 MG, AS NEEDED
     Route: 062
     Dates: start: 20240920
  8. DEXTROSE\POTASSIUM CHLORIDE\SODIUM CHLORIDE\SODIUM LACTATE [Concomitant]
     Active Substance: DEXTROSE MONOHYDRATE\POTASSIUM CHLORIDE\SODIUM CHLORIDE\SODIUM LACTATE
     Indication: Weight decreased
     Dosage: 500 MG, QD
     Route: 042
     Dates: start: 20240921
  9. DENOSUMAB [Concomitant]
     Active Substance: DENOSUMAB
     Indication: Bone cancer metastatic
     Dosage: 120 MG, ONCE EVERY 4 WK
     Route: 058
     Dates: start: 20240702
  10. DERMOSOL G [Concomitant]
     Indication: Granuloma
     Dosage: TIME INTERVAL: AS NECESSARY: UNK UNK, AS NEEDED
     Route: 003
     Dates: start: 20241109

REACTIONS (1)
  - IIIrd nerve paralysis [Recovering/Resolving]

NARRATIVE: CASE EVENT DATE: 20250826
